FAERS Safety Report 7946625-8 (Version None)
Quarter: 2011Q4

REPORT INFORMATION
  Report Type: 
  Country: None (occurrence: None)
  Receive Date: 20111129
  Receipt Date: 20111123
  Transmission Date: 20120403
  Serious: Yes (Hospitalization)
  Sender: FDA-Public Use
  Company Number: CA-BRISTOL-MYERS SQUIBB COMPANY-15965718

PATIENT
  Age: 63 Year
  Sex: Male
  Weight: 64 kg

DRUGS (20)
  1. DIPHENHYDRAMINE HCL [Concomitant]
     Dates: start: 20110526
  2. ERBITUX [Suspect]
     Indication: HEAD AND NECK CANCER
     Dosage: 28JUL11 26MAY11-26MAY11400MG/M2(1D) ON D1 2JUN11-28JUL 250MG/M2 D1,D8,D15,INTR4AUG11,REST ON19AUG
     Route: 065
     Dates: start: 20110526
  3. DOCUSATE [Concomitant]
     Dates: start: 20110324
  4. FUROSEMIDE [Concomitant]
     Dates: start: 20110526
  5. METHADONE HYDROCHLORIDE [Concomitant]
     Dates: start: 20111012, end: 20111104
  6. LEVOTHYROXINE SODIUM [Concomitant]
     Dates: start: 20101001
  7. FLURAZEPAM [Concomitant]
     Dates: start: 20100301
  8. SENNA [Concomitant]
     Dates: start: 20110324
  9. MORPHINE [Concomitant]
     Dates: start: 20110324
  10. MANNITOL [Concomitant]
     Dates: start: 20110526
  11. MIDAZOLAM [Concomitant]
     Dates: start: 20111001, end: 20111104
  12. DILAUDID [Concomitant]
     Dates: start: 20111007, end: 20111104
  13. LORAZEPAM [Concomitant]
     Dates: start: 19950101
  14. PREDNISONE TAB [Concomitant]
     Dates: start: 20110622
  15. CISPLATIN [Suspect]
     Indication: HEAD AND NECK CANCER
     Dosage: LAST DOSE:28JUL11
     Route: 042
     Dates: start: 20110526, end: 20110728
  16. FLUOROURACIL [Suspect]
     Indication: HEAD AND NECK CANCER
     Dosage: LAST DOSE:28JUL11 D1-D4
     Route: 042
     Dates: start: 20110526, end: 20110728
  17. DEXAMETHASONE [Concomitant]
     Dates: start: 20110526
  18. TRIMIPRAMINE MALEATE [Concomitant]
     Dates: start: 20080101
  19. PANTOPRAZOLE [Concomitant]
     Dates: start: 20110526
  20. HALDOL [Concomitant]
     Dates: start: 20111030

REACTIONS (2)
  - HYPOTENSION [None]
  - JOINT ABSCESS [None]
